FAERS Safety Report 23151786 (Version 6)
Quarter: 2025Q3

REPORT INFORMATION
  Report Type: Spontaneous
  Country: US (occurrence: US)
  Receive Date: 20231107
  Receipt Date: 20250917
  Transmission Date: 20251020
  Serious: No
  Sender: BIOGEN
  Company Number: US-BIOGEN-2023BI01224679

PATIENT
  Sex: Female

DRUGS (1)
  1. VUMERITY [Suspect]
     Active Substance: DIROXIMEL FUMARATE
     Indication: Multiple sclerosis
     Dosage: TAKING 1 PILL IN AM AND 1 PILL IN PM
     Route: 050
     Dates: start: 20220919

REACTIONS (5)
  - Intentional product misuse [Not Recovered/Not Resolved]
  - Osteoporosis [Unknown]
  - Confusional state [Unknown]
  - Memory impairment [Unknown]
  - Alopecia [Unknown]
